FAERS Safety Report 18896210 (Version 2)
Quarter: 2021Q1

REPORT INFORMATION
  Report Type: Spontaneous
  Country: FI (occurrence: FI)
  Receive Date: 20210216
  Receipt Date: 20210223
  Transmission Date: 20210420
  Serious: Yes (Hospitalization, Other)
  Sender: FDA-Public Use
  Company Number: FI-AUROBINDO-AUR-APL-2021-006066

PATIENT
  Sex: Female

DRUGS (25)
  1. CALCIUM D [Suspect]
     Active Substance: CALCIUM\VITAMIN D
     Indication: PRODUCT USED FOR UNKNOWN INDICATION
     Dosage: UNK
     Route: 065
  2. SANDIMMUN [Suspect]
     Active Substance: CYCLOSPORINE
     Dosage: 50MG PLUS 25 MG
     Route: 065
     Dates: start: 2019
  3. PREDNISOLONE. [Suspect]
     Active Substance: PREDNISOLONE
     Indication: INFECTION PROPHYLAXIS
     Dosage: 20 MILLIGRAM
     Route: 065
     Dates: start: 201704
  4. PREDNISOLONE. [Suspect]
     Active Substance: PREDNISOLONE
     Dosage: 10 MILLIGRAM
     Route: 065
     Dates: start: 2020
  5. SANDIMMUN [Suspect]
     Active Substance: CYCLOSPORINE
     Dosage: 175 MILLIGRAM
     Route: 065
     Dates: start: 2020
  6. AZITHROMYCIN ANHYDROUS. [Suspect]
     Active Substance: AZITHROMYCIN ANHYDROUS
     Indication: INFECTION PROPHYLAXIS
     Dosage: UNK
     Route: 065
     Dates: start: 2020
  7. PREDNISOLONE. [Suspect]
     Active Substance: PREDNISOLONE
     Dosage: 20?40 MG X 1
     Route: 065
     Dates: start: 201710
  8. RITUXIMAB. [Suspect]
     Active Substance: RITUXIMAB
     Indication: SYSTEMIC SCLERODERMA
     Dosage: 1000 MILLIGRAM, EVERY WEEK
     Route: 042
     Dates: start: 201704
  9. RAMIPRIL. [Suspect]
     Active Substance: RAMIPRIL
     Indication: PRODUCT USED FOR UNKNOWN INDICATION
     Dosage: 2.5 MILLIGRAM
     Route: 065
     Dates: start: 2020
  10. AMLODIPINE [Suspect]
     Active Substance: AMLODIPINE BESYLATE
     Indication: PRODUCT USED FOR UNKNOWN INDICATION
     Dosage: 5 MILLIGRAM
     Route: 065
     Dates: start: 2019
  11. AMLODIPINE [Suspect]
     Active Substance: AMLODIPINE BESYLATE
     Dosage: 5 MILLIGRAM
     Route: 065
     Dates: start: 2020
  12. PRIMASPAN [Suspect]
     Active Substance: ASPIRIN
     Indication: PRODUCT USED FOR UNKNOWN INDICATION
     Dosage: 100 MILLIGRAM
     Route: 065
     Dates: start: 201704
  13. VALCYTE [Suspect]
     Active Substance: VALGANCICLOVIR HYDROCHLORIDE
     Indication: PRODUCT USED FOR UNKNOWN INDICATION
     Dosage: UNK
     Route: 065
  14. VALGANCICLOVIR. [Suspect]
     Active Substance: VALGANCICLOVIR
     Indication: INFECTION PROPHYLAXIS
     Dosage: UNK
     Route: 065
     Dates: start: 2020
  15. CELLCEPT [Suspect]
     Active Substance: MYCOPHENOLATE MOFETIL\MYCOPHENOLATE MOFETIL HYDROCHLORIDE
     Dosage: 250 MILLIGRAM
     Route: 065
     Dates: start: 2020
  16. SANDIMMUN [Suspect]
     Active Substance: CYCLOSPORINE
     Dosage: 150MG PLUS 100 MG
     Route: 065
     Dates: start: 2020
  17. SILDENAFIL. [Suspect]
     Active Substance: SILDENAFIL
     Indication: PRODUCT USED FOR UNKNOWN INDICATION
     Dosage: 20 MILLIGRAM
     Route: 065
     Dates: start: 201704
  18. PRIMASPAN [Suspect]
     Active Substance: ASPIRIN
     Dosage: 50 MILLIGRAM
     Route: 065
     Dates: start: 2020
  19. TRACLEER [Suspect]
     Active Substance: BOSENTAN
     Indication: PRODUCT USED FOR UNKNOWN INDICATION
     Dosage: 62.5 MILLIGRAM
     Route: 065
     Dates: start: 201710
  20. CELLCEPT [Suspect]
     Active Substance: MYCOPHENOLATE MOFETIL\MYCOPHENOLATE MOFETIL HYDROCHLORIDE
     Indication: INFECTION PROPHYLAXIS
     Dosage: 500 MILLIGRAM
     Route: 065
     Dates: start: 2020
  21. LEFLUNOMIDE. [Suspect]
     Active Substance: LEFLUNOMIDE
     Indication: PRODUCT USED FOR UNKNOWN INDICATION
     Dosage: 20 MILLIGRAM
     Route: 065
     Dates: start: 201704
  22. MEDROL [Suspect]
     Active Substance: METHYLPREDNISOLONE
     Indication: PRODUCT USED FOR UNKNOWN INDICATION
     Dosage: 8 MILLIGRAM
     Route: 065
     Dates: start: 2019
  23. PREDNISOLONE. [Suspect]
     Active Substance: PREDNISOLONE
     Dosage: 7.5 MILLIGRAM
     Route: 065
     Dates: start: 202011
  24. SANDIMMUN [Suspect]
     Active Substance: CYCLOSPORINE
     Indication: INFECTION PROPHYLAXIS
     Dosage: 50 MILLIGRAM
     Route: 065
     Dates: start: 201710
  25. SANDIMMUN [Suspect]
     Active Substance: CYCLOSPORINE
     Dosage: 175MG PLUS 150 MG
     Route: 065
     Dates: start: 202011

REACTIONS (15)
  - Dyspnoea [Recovered/Resolved]
  - Pneumonia [Unknown]
  - Infected skin ulcer [Unknown]
  - Urinary tract infection [Unknown]
  - Musculoskeletal stiffness [Unknown]
  - Product use in unapproved indication [Unknown]
  - Off label use [Unknown]
  - Deafness [Unknown]
  - Cerebrovascular accident [Unknown]
  - Nasopharyngitis [Unknown]
  - Skin ulcer [Recovering/Resolving]
  - Pneumocystis jirovecii infection [Unknown]
  - Headache [Unknown]
  - Nausea [Unknown]
  - Productive cough [Unknown]

NARRATIVE: CASE EVENT DATE: 201704
